FAERS Safety Report 17380760 (Version 1)
Quarter: 2020Q1

REPORT INFORMATION
  Report Type: Spontaneous
  Country: US (occurrence: US)
  Receive Date: 20200206
  Receipt Date: 20200206
  Transmission Date: 20200409
  Serious: No
  Sender: FDA-Public Use
  Company Number: US-ABBVIE-19K-163-2753390-00

PATIENT
  Age: 62 Year
  Sex: Female
  Weight: 80.36 kg

DRUGS (2)
  1. PREDNISONE. [Concomitant]
     Active Substance: PREDNISONE
     Indication: PSORIATIC ARTHROPATHY
     Route: 065
  2. HUMIRA [Suspect]
     Active Substance: ADALIMUMAB
     Indication: PSORIATIC ARTHROPATHY
     Route: 058
     Dates: start: 201704

REACTIONS (17)
  - Hiatus hernia [Unknown]
  - Device issue [Unknown]
  - Ligament sprain [Unknown]
  - Weight decreased [Recovering/Resolving]
  - Gait disturbance [Recovering/Resolving]
  - Device issue [Unknown]
  - Joint swelling [Unknown]
  - Incorrect dose administered [Unknown]
  - Wrong technique in product usage process [Unknown]
  - Vomiting [Unknown]
  - Injection site pain [Unknown]
  - Incorrect dose administered [Unknown]
  - Wrong technique in product usage process [Unknown]
  - Arthralgia [Recovering/Resolving]
  - Mobility decreased [Unknown]
  - Nerve compression [Unknown]
  - Muscular weakness [Unknown]

NARRATIVE: CASE EVENT DATE: 2018
